FAERS Safety Report 26095389 (Version 1)
Quarter: 2025Q4

REPORT INFORMATION
  Report Type: Spontaneous
  Country: CN (occurrence: CN)
  Receive Date: 20251127
  Receipt Date: 20251127
  Transmission Date: 20260117
  Serious: Yes (Other)
  Sender: JIANGSU HENGRUI
  Company Number: CN-JIANGSU HENGRUI PHARMACEUTICALS CO., LTD.-H2025242068

PATIENT
  Age: 47 Year
  Weight: 64 kg

DRUGS (2)
  1. IRINOTECAN HYDROCHLORIDE [Suspect]
     Active Substance: IRINOTECAN HYDROCHLORIDE
     Indication: Rectosigmoid cancer
     Dosage: 240 MG, D1
  2. CAPECITABINE [Concomitant]
     Active Substance: CAPECITABINE
     Indication: Rectosigmoid cancer
     Dosage: 1.5 G, BID, D1-14, Q3W

REACTIONS (5)
  - Asthenia [Recovering/Resolving]
  - Dysphagia [Recovering/Resolving]
  - Vomiting [Recovering/Resolving]
  - Myelosuppression [Recovering/Resolving]
  - Hepatic function abnormal [Recovering/Resolving]
